FAERS Safety Report 8107693-6 (Version None)
Quarter: 2012Q1

REPORT INFORMATION
  Report Type: 
  Country: None (occurrence: None)
  Receive Date: 20120202
  Receipt Date: 20120130
  Transmission Date: 20120608
  Serious: Yes (Death, Hospitalization)
  Sender: FDA-Public Use
  Company Number: DE-BAYER-2011-113469

PATIENT
  Age: 62 Year
  Sex: Male
  Weight: 90 kg

DRUGS (10)
  1. PROPRANOLOL [Concomitant]
     Dosage: DAILY DOSE 30 MG
     Dates: start: 20090101
  2. PANTOPRAZOLE [Concomitant]
     Dosage: DAILY DOSE 20 MG
     Dates: start: 20110101
  3. LISIHEXAL [Concomitant]
     Dosage: DAILY DOSE 20 MG
     Dates: start: 20110101, end: 20111221
  4. TORSEMIDE [Concomitant]
     Dosage: DAILY DOSE 15 MG
     Dates: start: 20110101
  5. KA VIT TROPFEN [Concomitant]
     Dosage: DAILY DOSE 20 GTT
     Route: 048
     Dates: start: 20090101
  6. SORAFENIB [Suspect]
     Indication: HEPATIC NEOPLASM MALIGNANT
     Dosage: 400 MG, BID
     Dates: start: 20111025, end: 20111109
  7. ENOXAPARIN SODIUM [Concomitant]
     Dosage: DAILY DOSE 40 MG
     Dates: start: 20110101
  8. SIMVASTATIN [Concomitant]
     Dosage: DAILY DOSE 20 MG
     Dates: start: 20090101, end: 20111221
  9. CALCIUM CARBONATE [Concomitant]
     Dosage: ^1-0-1^ (BID)
     Dates: start: 20090101
  10. SPIRONOLACTONE [Concomitant]
     Dosage: DAILY DOSE 100 MG
     Dates: start: 20110101, end: 20111221

REACTIONS (3)
  - HEPATIC FAILURE [None]
  - HEPATIC ENCEPHALOPATHY [None]
  - FLUID RETENTION [None]
